FAERS Safety Report 9068695 (Version 1)
Quarter: 2013Q1

REPORT INFORMATION
  Report Type: Spontaneous
  Country: GB (occurrence: GB)
  Receive Date: 20130215
  Receipt Date: 20130215
  Transmission Date: 20140127
  Serious: Yes (Other)
  Sender: FDA-Public Use
  Company Number: GB-RANBAXY-2013R1-65160

PATIENT
  Age: 24 Year
  Sex: Female
  Weight: 69 kg

DRUGS (1)
  1. AMOXICILLIN [Suspect]
     Indication: PRODUCT USED FOR UNKNOWN INDICATION
     Dosage: UNK
     Route: 065
     Dates: start: 20130123

REACTIONS (3)
  - Face oedema [Recovering/Resolving]
  - Urticaria [Recovering/Resolving]
  - Urticaria [Unknown]
